FAERS Safety Report 17552532 (Version 1)
Quarter: 2020Q1

REPORT INFORMATION
  Report Type: Spontaneous
  Country: GB (occurrence: GB)
  Receive Date: 20200317
  Receipt Date: 20200317
  Transmission Date: 20200409
  Serious: Yes (Other)
  Sender: FDA-Public Use
  Company Number: GB-PFIZER INC-2020111617

PATIENT
  Age: 46 Year
  Sex: Male
  Weight: 75 kg

DRUGS (1)
  1. LIPITOR [Suspect]
     Active Substance: ATORVASTATIN CALCIUM
     Indication: BLOOD CHOLESTEROL INCREASED
     Dosage: 80 MG, UNK
     Route: 048
     Dates: start: 20181218

REACTIONS (3)
  - Swelling face [Not Recovered/Not Resolved]
  - Rash [Not Recovered/Not Resolved]
  - Eczema eyelids [Not Recovered/Not Resolved]

NARRATIVE: CASE EVENT DATE: 20200103
